FAERS Safety Report 10034041 (Version 1)
Quarter: 2014Q1

REPORT INFORMATION
  Report Type: Spontaneous
  Country: US (occurrence: None)
  Receive Date: 20140324
  Receipt Date: 20140324
  Transmission Date: 20141002
  Serious: Yes (Disabling)
  Sender: FDA-Public Use
  Company Number: None

PATIENT
  Age: 73 Year
  Sex: Male
  Weight: 92.99 kg

DRUGS (2)
  1. CASODEX [Suspect]
     Indication: PROSTATIC SPECIFIC ANTIGEN INCREASED
     Route: 048
     Dates: start: 20140123, end: 20140206
  2. CASODEX [Suspect]
     Indication: PROSTATE CANCER
     Route: 048
     Dates: start: 20140123, end: 20140206

REACTIONS (8)
  - Muscular weakness [None]
  - Pain [None]
  - Malaise [None]
  - Balance disorder [None]
  - Gait disturbance [None]
  - Quality of life decreased [None]
  - Muscular weakness [None]
  - Balance disorder [None]
